FAERS Safety Report 17202192 (Version 1)
Quarter: 2019Q4

REPORT INFORMATION
  Report Type: Spontaneous
  Country: FR (occurrence: FR)
  Receive Date: 20191226
  Receipt Date: 20191226
  Transmission Date: 20200122
  Serious: Yes (Hospitalization)
  Sender: FDA-Public Use
  Company Number: FR-PFIZER INC-2019553808

PATIENT
  Age: 47 Year
  Sex: Female
  Weight: 98 kg

DRUGS (2)
  1. AUGMENTIN [Suspect]
     Active Substance: AMOXICILLIN\CLAVULANATE POTASSIUM
     Indication: EAR INFECTION
     Dosage: UNK
     Route: 048
     Dates: start: 20191125, end: 20191129
  2. IBUPROFEN. [Suspect]
     Active Substance: IBUPROFEN
     Indication: EAR INFECTION
     Dosage: UNK
     Route: 048
     Dates: start: 20191125, end: 20191129

REACTIONS (1)
  - Acute generalised exanthematous pustulosis [Not Recovered/Not Resolved]

NARRATIVE: CASE EVENT DATE: 20191129
